FAERS Safety Report 6079093-4 (Version None)
Quarter: 2009Q1

REPORT INFORMATION
  Report Type: 
  Country: None (occurrence: None)
  Receive Date: 20090216
  Receipt Date: 20090206
  Transmission Date: 20090719
  Serious: Yes (Hospitalization, Other)
  Sender: FDA-Public Use
  Company Number: A0682851A

PATIENT
  Age: 53 Year
  Sex: Male
  Weight: 106.8 kg

DRUGS (5)
  1. AVANDIA [Suspect]
     Dosage: 4MG PER DAY
     Route: 048
     Dates: start: 19990901, end: 20070701
  2. GLUCOPHAGE [Concomitant]
     Dates: start: 19990501
  3. METFORMIN HCL [Concomitant]
     Dates: start: 20031001
  4. LANTUS [Concomitant]
     Dates: start: 20010101
  5. AMARYL [Concomitant]
     Dates: start: 19990101

REACTIONS (11)
  - ACTIVITIES OF DAILY LIVING IMPAIRED [None]
  - ANXIETY [None]
  - CARDIAC DISORDER [None]
  - CARDIAC FAILURE CONGESTIVE [None]
  - CORONARY ARTERY DISEASE [None]
  - DIVORCED [None]
  - FATIGUE [None]
  - INJURY [None]
  - MYOCARDIAL INFARCTION [None]
  - PAIN [None]
  - WEIGHT INCREASED [None]
